FAERS Safety Report 8832359 (Version 2)
Quarter: 2012Q4

REPORT INFORMATION
  Report Type: 
  Country: GB (occurrence: GB)
  Receive Date: 20121009
  Receipt Date: 20121015
  Transmission Date: 20130627
  Serious: Yes (Life-Threatening, Hospitalization, Other)
  Sender: FDA-Public Use
  Company Number: GB-B.I. PHARMACEUTICALS,INC./RIDGEFIELD-2012-UK-01334UK

PATIENT
  Sex: Male

DRUGS (1)
  1. DABIGATRAN [Suspect]
     Indication: ATRIAL FIBRILLATION
     Route: 048
     Dates: end: 20120904

REACTIONS (4)
  - Cardiac tamponade [Recovered/Resolved]
  - Haemodynamic instability [Recovered/Resolved]
  - Blood pressure decreased [Recovered/Resolved]
  - Liver function test abnormal [Unknown]
